FAERS Safety Report 6042134-4 (Version None)
Quarter: 2009Q1

REPORT INFORMATION
  Report Type: 
  Country: None (occurrence: None)
  Receive Date: 20090116
  Receipt Date: 20080620
  Transmission Date: 20090719
  Serious: No
  Sender: FDA-Public Use
  Company Number: US-BAYER-200812805BCC

PATIENT
  Age: 74 Year
  Sex: Male
  Weight: 77 kg

DRUGS (3)
  1. ALEVE [Suspect]
     Indication: DRUG USE FOR UNKNOWN INDICATION
     Dosage: TOTAL DAILY DOSE: 440 MG  UNIT DOSE: 220 MG
     Route: 048
     Dates: end: 20080615
  2. VITAMIN B-12 [Concomitant]
     Route: 065
  3. LANOXIN [Concomitant]
     Route: 065

REACTIONS (1)
  - CONSTIPATION [None]
